FAERS Safety Report 6484520-4 (Version None)
Quarter: 2009Q4

REPORT INFORMATION
  Report Type: 
  Country: None (occurrence: None)
  Receive Date: 20091203
  Receipt Date: 20091124
  Transmission Date: 20100525
  Serious: Yes (Death, Life-Threatening, Hospitalization)
  Sender: FDA-Public Use
  Company Number: 8020266

PATIENT
  Age: 60 Year
  Sex: Male
  Weight: 81 kg

DRUGS (5)
  1. CDP870 [Suspect]
     Indication: RHEUMATOID ARTHRITIS
     Dosage: 400 MG 1/2W SC
     Route: 058
     Dates: start: 20060420, end: 20061114
  2. METHOTREXATE [Concomitant]
  3. MELOXICAM [Concomitant]
  4. METHYLPREDNISOLONE ACETATE [Concomitant]
  5. FOLIC ACID [Concomitant]

REACTIONS (6)
  - ACUTE RESPIRATORY FAILURE [None]
  - CHEST PAIN [None]
  - PNEUMONIA [None]
  - RENAL FAILURE ACUTE [None]
  - TOXIC SHOCK SYNDROME STREPTOCOCCAL [None]
  - TREATMENT FAILURE [None]
